FAERS Safety Report 10029677 (Version 1)
Quarter: 2014Q1

REPORT INFORMATION
  Report Type: Spontaneous
  Country: US (occurrence: None)
  Receive Date: 20140321
  Receipt Date: 20140321
  Transmission Date: 20141002
  Serious: Yes (Life-Threatening, Hospitalization, Disabling)
  Sender: FDA-Public Use
  Company Number: None

PATIENT
  Age: 65 Year
  Sex: Male
  Weight: 120.2 kg

DRUGS (4)
  1. ANDROGEL [Suspect]
     Indication: BLOOD TESTOSTERONE DECREASED
     Dosage: 1 GEL/DAY ONCE DAILY
     Dates: start: 20101008, end: 20111030
  2. ANDROGEL [Suspect]
     Indication: SEXUAL DYSFUNCTION
     Dosage: 1 GEL/DAY ONCE DAILY
     Dates: start: 20101008, end: 20111030
  3. ANDRODERM [Suspect]
     Indication: BLOOD TESTOSTERONE DECREASED
     Dosage: 1 PATCH/DAY ONCE DAILY
     Dates: start: 20111101, end: 20120301
  4. ANDRODERM [Suspect]
     Indication: SEXUAL DYSFUNCTION
     Dosage: 1 PATCH/DAY ONCE DAILY
     Dates: start: 20111101, end: 20120301

REACTIONS (1)
  - Pulmonary embolism [None]
